FAERS Safety Report 22119370 (Version 1)
Quarter: 2023Q1

REPORT INFORMATION
  Report Type: Spontaneous
  Country: GB (occurrence: GB)
  Receive Date: 20230321
  Receipt Date: 20230321
  Transmission Date: 20230417
  Serious: Yes (Other)
  Sender: FDA-Public Use
  Company Number: GB-Orion Corporation ORION PHARMA-SAL 2023-0017

PATIENT

DRUGS (1)
  1. ALBUTEROL SULFATE [Suspect]
     Active Substance: ALBUTEROL SULFATE
     Indication: Product used for unknown indication
     Dosage: 100 MG, QD
     Route: 055
     Dates: start: 20230228

REACTIONS (3)
  - Foreign body in throat [Unknown]
  - Product complaint [Unknown]
  - Product contamination physical [Unknown]

NARRATIVE: CASE EVENT DATE: 20230228
